FAERS Safety Report 20427977 (Version 2)
Quarter: 2022Q1

REPORT INFORMATION
  Report Type: Spontaneous
  Country: US (occurrence: US)
  Receive Date: 20220204
  Receipt Date: 20220328
  Transmission Date: 20220423
  Serious: No
  Sender: FDA-Public Use
  Company Number: US-JNJFOC-20220158778

PATIENT
  Age: 78 Year
  Sex: Male

DRUGS (4)
  1. ERLEADA [Suspect]
     Active Substance: APALUTAMIDE
     Indication: Prostate cancer
     Route: 048
     Dates: start: 20211220
  2. METOPROLOL [Concomitant]
     Active Substance: METOPROLOL
     Indication: Blood pressure measurement
     Dates: start: 1985
  3. PRAVASTATIN [Concomitant]
     Active Substance: PRAVASTATIN
     Indication: Blood cholesterol
     Dates: start: 1985
  4. ALLOPURINOL [Concomitant]
     Active Substance: ALLOPURINOL
     Indication: Gout

REACTIONS (16)
  - Illness [Unknown]
  - Swollen tongue [Unknown]
  - Peripheral swelling [Unknown]
  - Dysphagia [Unknown]
  - Dizziness [Recovering/Resolving]
  - Headache [Unknown]
  - Dysphonia [Unknown]
  - Thirst [Unknown]
  - Taste disorder [Recovering/Resolving]
  - Vision blurred [Unknown]
  - Decreased appetite [Unknown]
  - Hot flush [Recovering/Resolving]
  - Diarrhoea [Unknown]
  - Arthralgia [Unknown]
  - Fatigue [Unknown]
  - Nausea [Unknown]
